FAERS Safety Report 10006383 (Version 1)
Quarter: 2014Q1

REPORT INFORMATION
  Report Type: Spontaneous
  Country: CL (occurrence: CL)
  Receive Date: 20140313
  Receipt Date: 20140313
  Transmission Date: 20141002
  Serious: Yes (Other)
  Sender: FDA-Public Use
  Company Number: CL-PFIZER INC-2014069755

PATIENT
  Age: 86 Year
  Sex: Female

DRUGS (6)
  1. XALATAN [Suspect]
     Indication: GLAUCOMA
     Dosage: 1 DROP, 2X/DAY
     Route: 047
     Dates: start: 2004
  2. ENALAPRIL [Concomitant]
  3. METFORMIN [Concomitant]
  4. ATORVASTATIN [Concomitant]
  5. RANITIDINE [Concomitant]
  6. PLAVIX [Concomitant]

REACTIONS (4)
  - Cardiac disorder [Unknown]
  - Off label use [Not Recovered/Not Resolved]
  - Eye swelling [Not Recovered/Not Resolved]
  - Limb injury [Unknown]
